FAERS Safety Report 9325087 (Version 2)
Quarter: 2013Q3

REPORT INFORMATION
  Report Type: Spontaneous
  Country: FR (occurrence: FR)
  Receive Date: 20130603
  Receipt Date: 20130904
  Transmission Date: 20140515
  Serious: Yes (Hospitalization)
  Sender: FDA-Public Use
  Company Number: FR-ABBOTT-13P-056-1098690-00

PATIENT
  Age: 26 Year
  Sex: Female

DRUGS (6)
  1. NORVIR [Suspect]
     Indication: HIV INFECTION
     Route: 048
     Dates: start: 20111025, end: 20130404
  2. NORVIR [Suspect]
     Dosage: DOSE INCREASED
     Route: 048
  3. REYATAZ [Suspect]
     Indication: HIV INFECTION
     Route: 048
     Dates: start: 20111025, end: 20130404
  4. REYATAZ [Suspect]
     Dosage: DOSE INCREASED
     Route: 048
  5. TRUVADA [Concomitant]
     Indication: HIV INFECTION
     Dosage: 200MG/245MG
     Route: 048
     Dates: start: 20111025
  6. ISENTRESS [Concomitant]
     Indication: PRODUCT USED FOR UNKNOWN INDICATION

REACTIONS (3)
  - Cholestasis of pregnancy [Recovered/Resolved]
  - Pruritus generalised [Recovered/Resolved]
  - Asthenia [Recovered/Resolved]
